FAERS Safety Report 5199808-7 (Version None)
Quarter: 2006Q4

REPORT INFORMATION
  Report Type: 
  Country: None (occurrence: None)
  Receive Date: 20061229
  Receipt Date: 20061222
  Transmission Date: 20070319
  Serious: Yes (Life-Threatening, Hospitalization)
  Sender: FDA-Public Use
  Company Number: 2006SP008888

PATIENT
  Age: 53 Year
  Sex: Male
  Weight: 57 kg

DRUGS (2)
  1. TEMODAL [Suspect]
     Indication: ANAPLASTIC ASTROCYTOMA
     Dosage: 220 MG; QD; PO
     Route: 048
     Dates: start: 20061024, end: 20061028
  2. TEMODAL [Suspect]
     Indication: RECURRENT CANCER
     Dosage: 220 MG; QD; PO
     Route: 048
     Dates: start: 20061024, end: 20061028

REACTIONS (2)
  - DEEP VEIN THROMBOSIS [None]
  - PNEUMONIA [None]
